FAERS Safety Report 25122300 (Version 2)
Quarter: 2025Q3

REPORT INFORMATION
  Report Type: Spontaneous
  Country: EU (occurrence: EU)
  Receive Date: 20250326
  Receipt Date: 20250909
  Transmission Date: 20251020
  Serious: Yes (Hospitalization, Other)
  Sender: TEVA
  Company Number: None

PATIENT
  Age: 71 Year
  Sex: Male

DRUGS (4)
  1. CARBOPLATIN [Suspect]
     Active Substance: CARBOPLATIN
     Indication: Oropharyngeal squamous cell carcinoma
     Route: 042
     Dates: start: 20250214, end: 20250214
  2. KEYTRUDA [Suspect]
     Active Substance: PEMBROLIZUMAB
     Indication: Oropharyngeal squamous cell carcinoma
     Route: 042
     Dates: start: 20250214, end: 20250214
  3. FLUOROURACIL [Suspect]
     Active Substance: FLUOROURACIL
     Indication: Oropharyngeal squamous cell carcinoma
     Route: 042
     Dates: start: 20250214, end: 202502
  4. TRAMADOL [Suspect]
     Active Substance: TRAMADOL
     Indication: Cancer pain
     Dosage: TRAMADOL HYDROCHLORIDE
     Route: 048
     Dates: start: 202205

REACTIONS (3)
  - Pneumonia [Recovered/Resolved]
  - Confusional state [Recovered/Resolved]
  - Bicytopenia [Recovered/Resolved]

NARRATIVE: CASE EVENT DATE: 20250217
